FAERS Safety Report 4726709-8 (Version None)
Quarter: 2005Q3

REPORT INFORMATION
  Report Type: 
  Country: None (occurrence: None)
  Receive Date: 20050725
  Receipt Date: 20050302
  Transmission Date: 20060218
  Serious: No
  Sender: FDA-Public Use
  Company Number: USA041080452

PATIENT
  Age: 42 Year
  Sex: Female
  Weight: 90 kg

DRUGS (12)
  1. STRATTERA [Suspect]
     Indication: ATTENTION DEFICIT/HYPERACTIVITY DISORDER
     Dosage: 80 MG
     Dates: start: 20040806
  2. LEVOTHYROXINE SODIUM [Concomitant]
  3. FLEXERIL [Concomitant]
  4. TRAMADOL [Concomitant]
  5. PROTONIX [Concomitant]
  6. ZYRTEC [Concomitant]
  7. KLONOPIN [Concomitant]
  8. WELLBUTRIN SR [Concomitant]
  9. AMBIEN [Concomitant]
  10. NABUMETONE [Concomitant]
  11. TYLENOL (CAPLET) [Concomitant]
  12. ROFECOXIB [Concomitant]

REACTIONS (14)
  - ABDOMINAL PAIN [None]
  - ANOREXIA [None]
  - CONSTIPATION [None]
  - CYSTITIS [None]
  - DIZZINESS [None]
  - DRUG INEFFECTIVE [None]
  - ERYTHEMA [None]
  - FATIGUE [None]
  - MALAISE [None]
  - NAUSEA [None]
  - PAIN [None]
  - STOMACH DISCOMFORT [None]
  - VOMITING [None]
  - WEIGHT DECREASED [None]
